FAERS Safety Report 4693791-6 (Version None)
Quarter: 2005Q2

REPORT INFORMATION
  Report Type: 
  Country: None (occurrence: None)
  Receive Date: 20050616
  Receipt Date: 20050609
  Transmission Date: 20051028
  Serious: Yes (Other)
  Sender: FDA-Public Use
  Company Number: 2005069871

PATIENT
  Age: 55 Year
  Sex: Male

DRUGS (7)
  1. NEURONTIN [Suspect]
     Indication: NEUROPATHIC PAIN
     Dosage: 600 MG (300 MG, 2 IN 1 D), ORAL
     Route: 048
     Dates: start: 20050425
  2. SENNA         (SENNA) [Concomitant]
  3. GLYCERIN             (GLYCERIN) [Concomitant]
  4. THIAMINE (THIAMINE) [Concomitant]
  5. DIHYDROCODEINE (DIHYDROCODEINE) [Concomitant]
  6. MELOXICAM [Concomitant]
  7. VITAMIN B (VITAMIN B) [Concomitant]

REACTIONS (3)
  - BLOOD PRESSURE INCREASED [None]
  - BODY TEMPERATURE INCREASED [None]
  - CONVULSION [None]
